FAERS Safety Report 5710796-4 (Version None)
Quarter: 2008Q2

REPORT INFORMATION
  Report Type: 
  Country: None (occurrence: None)
  Receive Date: 20080417
  Receipt Date: 20080417
  Transmission Date: 20081010
  Serious: No
  Sender: FDA-Public Use
  Company Number: None

PATIENT
  Sex: Female

DRUGS (1)
  1. VYTORIN [Suspect]

REACTIONS (4)
  - FLASHBACK [None]
  - MUSCLE ATROPHY [None]
  - MUSCULAR WEAKNESS [None]
  - SUICIDAL IDEATION [None]
